FAERS Safety Report 14326835 (Version 1)
Quarter: 2017Q4

REPORT INFORMATION
  Report Type: Spontaneous
  Country: US (occurrence: US)
  Receive Date: 20171226
  Receipt Date: 20171226
  Transmission Date: 20180321
  Serious: No
  Sender: FDA-Public Use
  Company Number: None

PATIENT
  Age: 46 Year
  Sex: Female
  Weight: 83.25 kg

DRUGS (1)
  1. LUPRON DEPOT [Suspect]
     Active Substance: LEUPROLIDE ACETATE
     Dosage: OTHER FREQUENCY:EVERY 3 MONTHS;?
     Route: 058
     Dates: start: 20070901, end: 20071201

REACTIONS (13)
  - Hypertension [None]
  - Tooth fracture [None]
  - Anxiety [None]
  - Angina pectoris [None]
  - Hypothyroidism [None]
  - Antiphospholipid syndrome [None]
  - Autoimmune thyroiditis [None]
  - Spinal pain [None]
  - Myelopathy [None]
  - Neuralgia [None]
  - Pain [None]
  - Bone pain [None]
  - Musculoskeletal stiffness [None]
